FAERS Safety Report 18722992 (Version 1)
Quarter: 2021Q1

REPORT INFORMATION
  Report Type: Spontaneous
  Country: US (occurrence: US)
  Receive Date: 20210107
  Receipt Date: 20210107
  Transmission Date: 20210419
  Serious: Yes (Death)
  Sender: FDA-Public Use
  Company Number: None

PATIENT
  Age: 74 Year
  Sex: Male

DRUGS (1)
  1. RIVAROXABAN (RIVAROXABAN 10MG TAB) [Suspect]
     Active Substance: RIVAROXABAN
     Dates: start: 20201019

REACTIONS (5)
  - Cerebral haemorrhage [None]
  - Infection [None]
  - Hypotension [None]
  - Coma scale [None]
  - Pyrexia [None]

NARRATIVE: CASE EVENT DATE: 20201019
